FAERS Safety Report 6923852-X (Version None)
Quarter: 2010Q3

REPORT INFORMATION
  Report Type: 
  Country: None (occurrence: None)
  Receive Date: 20100813
  Receipt Date: 20091021
  Transmission Date: 20110219
  Serious: No
  Sender: FDA-Public Use
  Company Number: US-BRISTOL-MYERS SQUIBB COMPANY-14824890

PATIENT
  Age: 42 Year
  Sex: Female

DRUGS (4)
  1. REYATAZ [Suspect]
     Indication: HIV INFECTION
  2. NORVIR [Concomitant]
     Indication: HIV INFECTION
  3. TRUVADA [Concomitant]
  4. BACTRIM [Concomitant]

REACTIONS (1)
  - DRUG DOSE OMISSION [None]
